FAERS Safety Report 21137273 (Version 10)
Quarter: 2023Q1

REPORT INFORMATION
  Report Type: Spontaneous
  Country: JP (occurrence: JP)
  Receive Date: 20220727
  Receipt Date: 20230329
  Transmission Date: 20230417
  Serious: Yes (Other)
  Sender: FDA-Public Use
  Company Number: JP-SUNOVION-2022DSP001412

PATIENT
  Age: 58 Year
  Sex: Male

DRUGS (1)
  1. LATUDA [Suspect]
     Active Substance: LURASIDONE HYDROCHLORIDE
     Indication: Product used for unknown indication
     Dosage: UNK
     Route: 048

REACTIONS (11)
  - Dystonia [Not Recovered/Not Resolved]
  - Suicidal ideation [Unknown]
  - Hallucination, auditory [Unknown]
  - Tardive dyskinesia [Unknown]
  - Akathisia [Not Recovered/Not Resolved]
  - Hyperventilation [Unknown]
  - Neck mass [Unknown]
  - Headache [Unknown]
  - Insomnia [Unknown]
  - Aggression [Unknown]
  - Amnesia [Unknown]
